FAERS Safety Report 21918594 (Version 1)
Quarter: 2023Q1

REPORT INFORMATION
  Report Type: Spontaneous
  Country: US (occurrence: US)
  Receive Date: 20230127
  Receipt Date: 20230127
  Transmission Date: 20230417
  Serious: No
  Sender: FDA-Public Use
  Company Number: US-BRISTOL-MYERS SQUIBB COMPANY-2023-012621

PATIENT
  Age: 65 Year
  Sex: Female
  Weight: 61.235 kg

DRUGS (1)
  1. REVLIMID [Suspect]
     Active Substance: LENALIDOMIDE
     Indication: Plasma cell myeloma
     Dosage: FREQUENCY: 21DAYS OF 28 DAYS CYCLE
     Route: 048
     Dates: start: 20180601

REACTIONS (1)
  - Hypoaesthesia [Unknown]
